FAERS Safety Report 11793291 (Version 1)
Quarter: 2015Q4

REPORT INFORMATION
  Report Type: Spontaneous
  Country: US (occurrence: US)
  Receive Date: 20151202
  Receipt Date: 20151202
  Transmission Date: 20160305
  Serious: No
  Sender: FDA-Public Use
  Company Number: US-PFIZER INC-2015400920

PATIENT
  Age: 57 Year
  Sex: Female

DRUGS (1)
  1. LYRICA [Suspect]
     Active Substance: PREGABALIN
     Dosage: 50 MG, UNK

REACTIONS (9)
  - Hypersensitivity [Unknown]
  - Non-cardiac chest pain [Unknown]
  - Feeling abnormal [Unknown]
  - Drug dispensing error [Unknown]
  - Cold sweat [Unknown]
  - Palpitations [Unknown]
  - Pharyngeal oedema [Unknown]
  - Dizziness [Unknown]
  - Nausea [Unknown]
